FAERS Safety Report 7353551-4 (Version None)
Quarter: 2011Q1

REPORT INFORMATION
  Report Type: 
  Country: None (occurrence: None)
  Receive Date: 20110315
  Receipt Date: 20110310
  Transmission Date: 20110831
  Serious: Yes (Other)
  Sender: FDA-Public Use
  Company Number: US-ELI_LILLY_AND_COMPANY-US200705000315

PATIENT
  Sex: Female
  Weight: 167.8 kg

DRUGS (9)
  1. HYDROCHLOROTHIAZIDE [Concomitant]
     Indication: BLOOD PRESSURE
     Dosage: 12.5 MG, UNK
  2. GLYBURIDE [Concomitant]
  3. METFORMIN [Concomitant]
  4. ZYPREXA [Suspect]
     Dosage: 15 MG, DAILY (1/D)
     Route: 048
  5. ZYPREXA [Suspect]
     Dosage: 10 MG, UNK
     Dates: start: 20060101
  6. ZYPREXA [Suspect]
     Indication: PARANOIA
     Dosage: 7.5 MG, DAILY (1/D)
     Route: 048
     Dates: start: 20010101
  7. CENTRUM SILVER [Concomitant]
  8. ASPIRIN [Concomitant]
  9. ZYPREXA [Suspect]
     Dosage: 2.5 MG, AS NEEDED

REACTIONS (11)
  - INCREASED APPETITE [None]
  - DRUG INEFFECTIVE [None]
  - FLUID RETENTION [None]
  - WEIGHT INCREASED [None]
  - HYPERTENSION [None]
  - DIZZINESS [None]
  - NERVOUSNESS [None]
  - MUSCLE ATROPHY [None]
  - DECREASED ACTIVITY [None]
  - DIABETES MELLITUS [None]
  - OFF LABEL USE [None]
